FAERS Safety Report 23870328 (Version 6)
Quarter: 2025Q4

REPORT INFORMATION
  Report Type: Spontaneous
  Country: US (occurrence: US)
  Receive Date: 20240517
  Receipt Date: 20251111
  Transmission Date: 20260117
  Serious: Yes (Other)
  Sender: SANOFI AVENTIS
  Company Number: US-SA-SAC20240516000335

PATIENT
  Sex: Female
  Weight: 80.285 kg

DRUGS (2)
  1. DUPIXENT [Suspect]
     Active Substance: DUPILUMAB
     Indication: Asthma
     Dosage: 600 MG, 1X
     Route: 058
  2. DUPIXENT [Suspect]
     Active Substance: DUPILUMAB
     Dosage: 300 MG, QOW
     Route: 058

REACTIONS (27)
  - Hepatitis C [Unknown]
  - Arthritis [Unknown]
  - Fatigue [Unknown]
  - Hernia [Unknown]
  - Hernia pain [Unknown]
  - Pain [Unknown]
  - Blood glucose increased [Unknown]
  - Chromaturia [Unknown]
  - Abdominal pain upper [Unknown]
  - Immune system disorder [Unknown]
  - Influenza [Not Recovered/Not Resolved]
  - Cough [Not Recovered/Not Resolved]
  - Rhinorrhoea [Not Recovered/Not Resolved]
  - Product dose omission issue [Not Recovered/Not Resolved]
  - Respiratory disorder [Recovering/Resolving]
  - Gastrointestinal disorder [Recovering/Resolving]
  - Eczema [Unknown]
  - Alopecia [Unknown]
  - Bronchitis [Unknown]
  - Illness [Unknown]
  - Dizziness [Unknown]
  - Presyncope [Unknown]
  - Headache [Not Recovered/Not Resolved]
  - Vertigo [Unknown]
  - Asthma [Recovering/Resolving]
  - Dyspnoea [Recovering/Resolving]
  - Injection site pain [Unknown]
